FAERS Safety Report 8786493 (Version 1)
Quarter: 2012Q4

REPORT INFORMATION
  Report Type: Spontaneous
  Country: JP (occurrence: None)
  Receive Date: 20120905
  Receipt Date: 20120905
  Transmission Date: 20130627
  Serious: Yes (Other)
  Sender: FDA-Public Use
  Company Number: 2012P1055648

PATIENT
  Sex: Female

DRUGS (4)
  1. FAMOTIDINE [Suspect]
     Route: 048
  2. VESICARE [Suspect]
     Route: 048
  3. PLETAAL [Concomitant]
  4. UNSPECIFIED DRUGS [Concomitant]

REACTIONS (2)
  - Electrocardiogram QT prolonged [None]
  - Ventricular tachycardia [None]
